FAERS Safety Report 9098831 (Version 2)
Quarter: 2013Q1

REPORT INFORMATION
  Report Type: Spontaneous
  Country: GB (occurrence: GB)
  Receive Date: 20130213
  Receipt Date: 20130313
  Transmission Date: 20140127
  Serious: Yes (Hospitalization, Other)
  Sender: FDA-Public Use
  Company Number: GB-ASTELLAS-2013US001458

PATIENT
  Age: 70 None
  Sex: Female
  Weight: 67 kg

DRUGS (12)
  1. TARCEVA [Suspect]
     Indication: PRODUCT USED FOR UNKNOWN INDICATION
     Dosage: 150 MG, UID/QD
     Route: 048
     Dates: start: 20120913, end: 20130103
  2. TARCEVA [Suspect]
     Dosage: 150 MG, UID/QD
     Route: 048
     Dates: end: 20130213
  3. GABAPENTIN [Concomitant]
     Indication: PAIN
     Dosage: 1200 MG, UID/QD
     Route: 048
     Dates: start: 201207
  4. GABAPENTIN [Concomitant]
     Indication: PARAESTHESIA
  5. PARACETAMOL [Concomitant]
     Indication: PAIN
     Dosage: 1 G, UNKNOWN/D
     Route: 048
     Dates: start: 201207
  6. PARACETAMOL [Concomitant]
     Indication: PARAESTHESIA
  7. BISOPROLOL [Concomitant]
     Indication: PRODUCT USED FOR UNKNOWN INDICATION
     Dosage: 2.5 MG, UNKNOWN/D
     Route: 065
  8. AMILORIDE                          /00278602/ [Concomitant]
     Indication: PRODUCT USED FOR UNKNOWN INDICATION
     Dosage: 10 MG, UNKNOWN/D
     Route: 065
  9. VITAMIN B COMPLEX [Concomitant]
     Indication: PRODUCT USED FOR UNKNOWN INDICATION
     Dosage: 1 DF, UNKNOWN/D
     Route: 065
  10. SANDO K                            /00209301/ [Concomitant]
     Indication: PRODUCT USED FOR UNKNOWN INDICATION
     Dosage: 1 DF, UNKNOWN/D
     Route: 065
  11. ADCAL D3 [Concomitant]
     Indication: PRODUCT USED FOR UNKNOWN INDICATION
     Dosage: 1.5G/400MG
     Route: 065
  12. MULTIVITAMIN                       /00097801/ [Concomitant]
     Indication: PRODUCT USED FOR UNKNOWN INDICATION
     Dosage: UNK
     Route: 065

REACTIONS (5)
  - Electrolyte imbalance [Recovered/Resolved]
  - Hemiparesis [Unknown]
  - Atrial fibrillation [Unknown]
  - Metastases to central nervous system [Unknown]
  - Lethargy [Unknown]
